FAERS Safety Report 8231617-4 (Version None)
Quarter: 2012Q1

REPORT INFORMATION
  Report Type: 
  Country: None (occurrence: None)
  Receive Date: 20120323
  Receipt Date: 20120313
  Transmission Date: 20120608
  Serious: Yes (Hospitalization)
  Sender: FDA-Public Use
  Company Number: US-ELI_LILLY_AND_COMPANY-US201201000548

PATIENT
  Sex: Female
  Weight: 65.76 kg

DRUGS (16)
  1. SIMVASTATIN [Concomitant]
     Dosage: 40 MG, QD
  2. FORTEO [Suspect]
     Indication: OSTEOPOROSIS
     Dosage: 20 UG, QD
     Route: 058
     Dates: start: 20110814
  3. FORTEO [Suspect]
     Dosage: 20 UG, QD
     Route: 058
  4. ASPIRIN [Concomitant]
     Dosage: 325 MG, QD
  5. NITROGLYCERIN [Concomitant]
     Dosage: UNK, PRN
  6. VITAMIN D [Concomitant]
     Dosage: 1000 MG, QD
  7. SYNTHROID [Concomitant]
     Dosage: 0.05 MG, QD
  8. PLAVIX [Concomitant]
     Dosage: 75 MG, QD
  9. MUCINEX [Concomitant]
     Dosage: 600 MG, BID
  10. METOPROLOL SUCCINATE [Concomitant]
     Dosage: 25 MG, QD
  11. AZITHROMYCIN [Concomitant]
     Dosage: 500 MG, QD
  12. CALCIUM CARBONATE W/VITAMIN D NOS [Concomitant]
     Dosage: 600 MG, BID
  13. ASCORBIC ACID [Concomitant]
     Dosage: 1000 MG, QD
  14. LOVAZA [Concomitant]
     Dosage: 1000 MG, QD
  15. FORTEO [Suspect]
     Dosage: 20 UG, QD
     Route: 058
  16. MULTI-VITAMINS [Concomitant]
     Dosage: UNK UNK, QD

REACTIONS (4)
  - DIARRHOEA [None]
  - PNEUMONIA [None]
  - URINARY TRACT INFECTION [None]
  - VISUAL IMPAIRMENT [None]
